FAERS Safety Report 5962245-9 (Version None)
Quarter: 2008Q4

REPORT INFORMATION
  Report Type: 
  Country: None (occurrence: None)
  Receive Date: 20081121
  Receipt Date: 20081119
  Transmission Date: 20090506
  Serious: Yes (Other)
  Sender: FDA-Public Use
  Company Number: JP-B.I. PHARMACEUTICALS,INC./RIDGEFIELD-2008-BP-14867NB

PATIENT
  Sex: Male
  Weight: 74 kg

DRUGS (4)
  1. MICARDIS [Suspect]
     Indication: HYPERTENSION
     Dosage: 40MG
     Route: 048
     Dates: start: 20040901, end: 20080821
  2. ZYLORIC [Suspect]
     Dosage: 1ANZ
     Route: 048
     Dates: start: 20080430, end: 20080821
  3. NINJIN-YOEI-TO [Suspect]
     Dosage: 3ANZ
     Route: 048
     Dates: start: 20080410, end: 20080821
  4. NORVASC [Concomitant]
     Dosage: 5MG
     Route: 048
     Dates: start: 20040901, end: 20080821

REACTIONS (2)
  - DRUG ERUPTION [None]
  - RENAL FAILURE [None]
